FAERS Safety Report 4776327-0 (Version None)
Quarter: 2005Q3

REPORT INFORMATION
  Report Type: 
  Country: None (occurrence: None)
  Receive Date: 20050921
  Receipt Date: 20050906
  Transmission Date: 20060218
  Serious: Yes (Hospitalization)
  Sender: FDA-Public Use
  Company Number: 2005P1000378

PATIENT
  Age: 72 Year
  Sex: Female
  Weight: 60 kg

DRUGS (9)
  1. RETEVASE [Suspect]
     Indication: ACUTE MYOCARDIAL INFARCTION
     Dosage: 5 IU; IV
     Route: 042
     Dates: start: 20041004, end: 20041004
  2. ABCIXIMAB (ABCIXIMAB) [Suspect]
     Indication: ACUTE MYOCARDIAL INFARCTION
     Dosage: 4.0 ML; IV
     Route: 042
     Dates: start: 20041004
  3. ASPIRIN [Suspect]
  4. HEPARIN [Concomitant]
  5. BETA BLOCKING AGENTS [Concomitant]
  6. HEPARIN SODIUM [Concomitant]
  7. STATINS [Concomitant]
  8. DIURETICS [Concomitant]
  9. ACE INHIBITOR NOS [Concomitant]

REACTIONS (2)
  - CORONARY ARTERY DISEASE [None]
  - THROMBOLYSIS [None]
